FAERS Safety Report 25405712 (Version 3)
Quarter: 2025Q3

REPORT INFORMATION
  Report Type: Spontaneous
  Country: US (occurrence: US)
  Receive Date: 20250606
  Receipt Date: 20250829
  Transmission Date: 20251021
  Serious: No
  Sender: ABBVIE
  Company Number: US-ABBVIE-6309846

PATIENT
  Sex: Female

DRUGS (2)
  1. ARMOUR THYROID [Suspect]
     Active Substance: THYROID, PORCINE
     Indication: Hypothyroidism
     Route: 048
  2. NP THYROID [Suspect]
     Active Substance: LEVOTHYROXINE\LIOTHYRONINE
     Indication: Product used for unknown indication
     Route: 065

REACTIONS (9)
  - Abdominal distension [Unknown]
  - Product dispensing error [Unknown]
  - Brain fog [Unknown]
  - Headache [Unknown]
  - Mood altered [Unknown]
  - Fatigue [Unknown]
  - Anger [Unknown]
  - Feeling abnormal [Unknown]
  - Weight increased [Unknown]
